FAERS Safety Report 16343299 (Version 1)
Quarter: 2019Q2

REPORT INFORMATION
  Report Type: Spontaneous
  Country: US (occurrence: US)
  Receive Date: 20190521
  Receipt Date: 20190521
  Transmission Date: 20190711
  Serious: Yes (Hospitalization)
  Sender: FDA-Public Use
  Company Number: None

PATIENT
  Age: 56 Year
  Sex: Male

DRUGS (7)
  1. LISINOPRIL. [Concomitant]
     Active Substance: LISINOPRIL
  2. METOPROL SUC [Concomitant]
  3. LOSARTAN POT [Concomitant]
     Active Substance: LOSARTAN POTASSIUM
  4. BRILINTA [Concomitant]
     Active Substance: TICAGRELOR
  5. ATORVASTATIN [Concomitant]
     Active Substance: ATORVASTATIN
  6. ENBREL [Suspect]
     Active Substance: ETANERCEPT
     Indication: ANKYLOSING SPONDYLITIS
     Dosage: ?          OTHER FREQUENCY:QWK;?
     Route: 058
  7. ASPIRIN. [Concomitant]
     Active Substance: ASPIRIN

REACTIONS (1)
  - Myocardial infarction [None]

NARRATIVE: CASE EVENT DATE: 20190407
